FAERS Safety Report 11092028 (Version 1)
Quarter: 2015Q2

REPORT INFORMATION
  Report Type: Spontaneous
  Country: NL (occurrence: NL)
  Receive Date: 20150505
  Receipt Date: 20150505
  Transmission Date: 20150821
  Serious: Yes (Other)
  Sender: FDA-Public Use
  Company Number: NL-MYLANLABS-2015M1014407

PATIENT

DRUGS (5)
  1. BECLOMETHASONE                     /00212602/ [Concomitant]
     Indication: PRODUCT USED FOR UNKNOWN INDICATION
     Dosage: 1 DF, QID
     Route: 065
  2. FLIXONASE [Concomitant]
     Active Substance: FLUTICASONE PROPIONATE
     Indication: PRODUCT USED FOR UNKNOWN INDICATION
     Dosage: UNK (1 TO 2 TIMES DAILY ONE OR TWO PUFFS)
     Route: 065
  3. FORMOTEROL MYLAN 12, INHALATIEPOEDER IN HARDE CAPSULE 12UG/DOSIS [Suspect]
     Active Substance: FORMOTEROL
     Indication: CHRONIC OBSTRUCTIVE PULMONARY DISEASE
     Dosage: UNK
     Route: 065
  4. SEEBRI [Concomitant]
     Active Substance: GLYCOPYRRONIUM
     Indication: PRODUCT USED FOR UNKNOWN INDICATION
     Dosage: 1 DF, QD
     Route: 065
  5. AIROMIR                            /00139501/ [Concomitant]
     Indication: PRODUCT USED FOR UNKNOWN INDICATION
     Dosage: UNK (IF NECESSARY)
     Route: 065

REACTIONS (3)
  - Chronic obstructive pulmonary disease [None]
  - Therapeutic response decreased [Recovering/Resolving]
  - Condition aggravated [Unknown]
